FAERS Safety Report 16826919 (Version 4)
Quarter: 2020Q4

REPORT INFORMATION
  Report Type: Report from Study
  Country: GB (occurrence: GB)
  Receive Date: 20190919
  Receipt Date: 20201006
  Transmission Date: 20210113
  Serious: Yes (Hospitalization)
  Sender: FDA-Public Use
  Company Number: GB-ROCHE-2406948

PATIENT
  Age: 75 Year
  Sex: Male

DRUGS (12)
  1. RITUXIMAB. [Suspect]
     Active Substance: RITUXIMAB
     Indication: DIFFUSE LARGE B-CELL LYMPHOMA REFRACTORY
     Dosage: DATE OF MOST RECENT DOSE OF RITUXIMAB PRIOR TO AE ONSET 29/AUG/2019 760 MG?375 MG/M^2 VIA INTRAVENOU
     Route: 042
     Dates: start: 20190829
  2. LANSOPRAZOLE. [Concomitant]
     Active Substance: LANSOPRAZOLE
     Indication: DYSPEPSIA
  3. ACICLOVIR [Concomitant]
     Active Substance: ACYCLOVIR
     Dates: start: 20190829
  4. LEVOTHYROXINE. [Concomitant]
     Active Substance: LEVOTHYROXINE
     Indication: HYPOTHYROIDISM
  5. POLATUZUMAB VEDOTIN. [Suspect]
     Active Substance: POLATUZUMAB VEDOTIN
     Indication: DIFFUSE LARGE B-CELL LYMPHOMA REFRACTORY
     Dosage: DATE OF MOST RECENT DOSE OF POLATUZUMAB VEDOTIN PRIOR TO AE ONSET 29/AUG/2019 150 MG
     Route: 042
     Dates: start: 20190829
  6. ALLOPURINOL. [Concomitant]
     Active Substance: ALLOPURINOL
     Indication: PROPHYLAXIS
     Dates: start: 20190829
  7. SENNA [Concomitant]
     Active Substance: SENNA LEAF\SENNOSIDES\SENNOSIDES A AND B
     Indication: CONSTIPATION
  8. PIRITON [Concomitant]
     Active Substance: CHLORPHENIRAMINE MALEATE
     Indication: DRUG ERUPTION
     Dates: start: 20190911, end: 20190913
  9. PYRIDOXINE [Concomitant]
     Active Substance: PYRIDOXINE
     Indication: NEUROPATHY PERIPHERAL
  10. ASPIRIN. [Concomitant]
     Active Substance: ASPIRIN
     Dates: start: 20190829
  11. LENALIDOMIDE [Suspect]
     Active Substance: LENALIDOMIDE
     Indication: DIFFUSE LARGE B-CELL LYMPHOMA REFRACTORY
     Dosage: DATE OF MOST RECENT DOSE OF LENALIDOMIDE PRIOR TO AE ONSET 07/SEP/2019 20 MG?AT DOSES OF 10, 15, OR
     Route: 048
     Dates: start: 20190829
  12. COTRIMOXAZOLE [Concomitant]
     Active Substance: SULFAMETHOXAZOLE\TRIMETHOPRIM
     Dates: start: 20190829

REACTIONS (1)
  - Urosepsis [Recovered/Resolved]

NARRATIVE: CASE EVENT DATE: 20190908
